FAERS Safety Report 5809237-8 (Version None)
Quarter: 2008Q3

REPORT INFORMATION
  Report Type: 
  Country: None (occurrence: None)
  Receive Date: 20080714
  Receipt Date: 20080702
  Transmission Date: 20090109
  Serious: Yes (Hospitalization, Other)
  Sender: FDA-Public Use
  Company Number: US-PFIZER INC-2008056660

PATIENT
  Sex: Male
  Weight: 112.72 kg

DRUGS (10)
  1. LYRICA [Suspect]
     Indication: FIBROMYALGIA
     Dates: start: 20070101, end: 20080101
  2. ABILIFY [Concomitant]
  3. HYDROCODONE [Concomitant]
  4. CLONIDINE [Concomitant]
  5. METOPROLOL [Concomitant]
  6. TRAZODONE HCL [Concomitant]
  7. ALL OTHER THERAPEUTIC PRODUCTS [Concomitant]
  8. CLONAZEPAM [Concomitant]
  9. NEXIUM [Concomitant]
  10. ZOLOFT [Concomitant]

REACTIONS (5)
  - ABASIA [None]
  - BIPOLAR DISORDER [None]
  - FLIGHT OF IDEAS [None]
  - MANIA [None]
  - PAIN IN EXTREMITY [None]
